FAERS Safety Report 21304464 (Version 1)
Quarter: 2022Q3

REPORT INFORMATION
  Report Type: Spontaneous
  Country: US (occurrence: None)
  Receive Date: 20220907
  Receipt Date: 20220907
  Transmission Date: 20221026
  Serious: No
  Sender: FDA-Public Use
  Company Number: US-ARIS GLOBAL-202108-1447

PATIENT
  Sex: Female

DRUGS (6)
  1. OXERVATE [Suspect]
     Active Substance: CENEGERMIN-BKBJ
     Indication: Neurotrophic keratopathy
     Route: 047
     Dates: start: 20210809, end: 20210930
  2. OXERVATE [Suspect]
     Active Substance: CENEGERMIN-BKBJ
     Indication: Ulcerative keratitis
  3. ERYTHROMYCIN-BENZOYL [Concomitant]
  4. ATROPINE SULFATE [Concomitant]
     Active Substance: ATROPINE SULFATE
  5. PREDNISOLONE-NEPAFENAC [Concomitant]
  6. ERYTHROMYCIN [Concomitant]
     Active Substance: ERYTHROMYCIN
     Indication: Eye infection

REACTIONS (4)
  - Exposure during pregnancy [Unknown]
  - Ocular hyperaemia [Unknown]
  - Eye irritation [Unknown]
  - Lacrimation increased [Unknown]
